FAERS Safety Report 5240084-4 (Version None)
Quarter: 2007Q1

REPORT INFORMATION
  Report Type: 
  Country: None (occurrence: None)
  Receive Date: 20070216
  Receipt Date: 20070206
  Transmission Date: 20070707
  Serious: Yes (Other)
  Sender: FDA-Public Use
  Company Number: US-PFIZER INC-2007010265

PATIENT
  Sex: Male
  Weight: 95.3 kg

DRUGS (3)
  1. CHANTIX [Suspect]
     Indication: SMOKING CESSATION THERAPY
     Dates: start: 20070101, end: 20070101
  2. LIPITOR [Suspect]
  3. TRICOR [Suspect]
     Dates: start: 20070101, end: 20070101

REACTIONS (2)
  - ROTATOR CUFF REPAIR [None]
  - URTICARIA [None]
